FAERS Safety Report 4682632-9 (Version None)
Quarter: 2005Q2

REPORT INFORMATION
  Report Type: 
  Country: None (occurrence: None)
  Receive Date: 20050606
  Receipt Date: 20050427
  Transmission Date: 20051028
  Serious: Yes (Other)
  Sender: FDA-Public Use
  Company Number: CA-GLAXOSMITHKLINE-A0556893A

PATIENT
  Age: 20 Year
  Sex: Female
  Weight: 64 kg

DRUGS (3)
  1. ADVAIR DISKUS 100/50 [Suspect]
     Indication: DRUG USE FOR UNKNOWN INDICATION
     Dosage: 1PUFF TWICE PER DAY
     Route: 055
     Dates: start: 20011010
  2. BECLOVENT [Concomitant]
     Indication: ASTHMA
     Dates: start: 19890101
  3. PULMICORT [Concomitant]
     Indication: ASTHMA
     Dosage: .2MG TWICE PER DAY
     Dates: start: 20000101, end: 20010101

REACTIONS (2)
  - JAW DISORDER [None]
  - OSTEOLYSIS [None]
